FAERS Safety Report 6278384-1 (Version None)
Quarter: 2009Q3

REPORT INFORMATION
  Report Type: 
  Country: None (occurrence: None)
  Receive Date: 20090722
  Receipt Date: 20090708
  Transmission Date: 20100115
  Serious: Yes (Other)
  Sender: FDA-Public Use
  Company Number: GB-GENENTECH-286922

PATIENT
  Age: 39 Year
  Sex: Male

DRUGS (1)
  1. XOLAIR [Suspect]
     Indication: ASTHMA
     Dosage: 2 VIAL, UNK
     Dates: start: 20090708

REACTIONS (1)
  - SYNCOPE [None]
